FAERS Safety Report 7603089 (Version 8)
Quarter: 2015Q2

REPORT INFORMATION
  Report Type: Spontaneous
  Country: DE (occurrence: DE)
  Receive Date: 20100923
  Receipt Date: 20150602
  Transmission Date: 20150821
  Serious: Yes (Life-Threatening, Hospitalization, Disabling, Other)
  Sender: FDA-Public Use
  Company Number: DE-BAYER-201015827GPV

PATIENT
  Age: 23 Year
  Sex: Female
  Weight: 60 kg

DRUGS (1)
  1. YASMIN [Suspect]
     Active Substance: DROSPIRENONE\ETHINYL ESTRADIOL
     Dosage: UNK
     Route: 048
     Dates: start: 200509, end: 20060815

REACTIONS (28)
  - Tachycardia [Recovering/Resolving]
  - Cough [Recovering/Resolving]
  - Pulmonary infarction [None]
  - Syncope [None]
  - Dyspnoea exertional [Recovering/Resolving]
  - Exercise tolerance decreased [Recovering/Resolving]
  - Decreased appetite [Recovering/Resolving]
  - Hypoaesthesia oral [None]
  - Respiratory gas exchange disorder [Not Recovered/Not Resolved]
  - Nausea [None]
  - Pulmonary artery stenosis [Recovering/Resolving]
  - Chest pain [Recovering/Resolving]
  - Right ventricular failure [None]
  - Headache [None]
  - Abdominal pain [None]
  - Tachycardia [None]
  - Exercise tolerance decreased [None]
  - Dyspnoea [Recovering/Resolving]
  - Pulmonary embolism [Recovering/Resolving]
  - Fatigue [Recovering/Resolving]
  - Productive cough [Recovering/Resolving]
  - Vaginal haemorrhage [None]
  - Dyspnoea exertional [None]
  - Lung disorder [Recovering/Resolving]
  - Back pain [Recovering/Resolving]
  - Suffocation feeling [Recovering/Resolving]
  - Pyrexia [Recovering/Resolving]
  - Pulmonary arterial hypertension [None]

NARRATIVE: CASE EVENT DATE: 20050920
